FAERS Safety Report 10462126 (Version 2)
Quarter: 2014Q3

REPORT INFORMATION
  Report Type: Spontaneous
  Country: US (occurrence: US)
  Receive Date: 20140918
  Receipt Date: 20140918
  Transmission Date: 20150326
  Serious: Yes (Death, Hospitalization)
  Sender: FDA-Public Use
  Company Number: US-GLAXOSMITHKLINE-A0757476A

PATIENT
  Sex: Male
  Weight: 84.1 kg

DRUGS (18)
  1. LOVASTATIN. [Concomitant]
     Active Substance: LOVASTATIN
  2. ASPIRIN. [Concomitant]
     Active Substance: ASPIRIN
  3. NORVASC [Concomitant]
     Active Substance: AMLODIPINE BESYLATE
  4. NIASPAN [Concomitant]
     Active Substance: NIACIN
  5. BUPROPION [Concomitant]
     Active Substance: BUPROPION
  6. ACIPHEX [Concomitant]
     Active Substance: RABEPRAZOLE SODIUM
  7. PLAQUENIL [Concomitant]
     Active Substance: HYDROXYCHLOROQUINE SULFATE
  8. AVANDIA [Suspect]
     Active Substance: ROSIGLITAZONE MALEATE
     Indication: DIABETES MELLITUS
     Dosage: 8MG PER DAY
     Route: 048
     Dates: start: 20010803, end: 20061129
  9. ATENOLOL. [Concomitant]
     Active Substance: ATENOLOL
  10. COZAAR [Concomitant]
     Active Substance: LOSARTAN POTASSIUM
  11. AZATHIOPRINE. [Concomitant]
     Active Substance: AZATHIOPRINE
  12. QUINAPRIL [Concomitant]
     Active Substance: QUINAPRIL\QUINAPRIL HYDROCHLORIDE
  13. INSULIN [Concomitant]
     Active Substance: INSULIN NOS
  14. HYDROXYCHLOROQUINE [Concomitant]
     Active Substance: HYDROXYCHLOROQUINE
  15. CLONIDINE. [Concomitant]
     Active Substance: CLONIDINE
  16. DIPYRIDAMOLE. [Concomitant]
     Active Substance: DIPYRIDAMOLE
  17. SPIRIVA [Concomitant]
     Active Substance: TIOTROPIUM BROMIDE MONOHYDRATE
  18. SUPPLEMENT [Concomitant]
     Active Substance: UNSPECIFIED INGREDIENT

REACTIONS (9)
  - Pneumonia [Unknown]
  - Cardiac failure congestive [Unknown]
  - Coronary artery disease [Unknown]
  - Pulmonary oedema [Unknown]
  - Chronic obstructive pulmonary disease [Unknown]
  - Acute myocardial infarction [Fatal]
  - Respiratory failure [Fatal]
  - Interstitial lung disease [Unknown]
  - Atrial fibrillation [Unknown]
